FAERS Safety Report 18985062 (Version 5)
Quarter: 2023Q2

REPORT INFORMATION
  Report Type: Spontaneous
  Country: GB (occurrence: GB)
  Receive Date: 20210308
  Receipt Date: 20230503
  Transmission Date: 20230722
  Serious: Yes (Other)
  Sender: FDA-Public Use
  Company Number: GB-ROCHE-2176577

PATIENT
  Age: 50 Year
  Sex: Female

DRUGS (24)
  1. TAMOXIFEN [Suspect]
     Active Substance: TAMOXIFEN
     Indication: Breast cancer
     Dosage: 20 MILLIGRAM, ONCE A DAY
     Route: 048
     Dates: start: 20160420
  2. DOCETAXEL [Suspect]
     Active Substance: DOCETAXEL
     Indication: Breast cancer
     Dosage: 130 MILLIGRAM 3 WEEK
     Route: 042
     Dates: start: 20150904, end: 20151016
  3. DOCETAXEL [Suspect]
     Active Substance: DOCETAXEL
     Dosage: 100 MILLIGRAM , 3 WEEK (DOSE MODIFIED DUE TO AE FROM 130 TO 100PLANNED CYCLES COMPLETED HENCE DISCON
     Route: 042
     Dates: start: 20151113, end: 20160104
  4. PERTUZUMAB [Suspect]
     Active Substance: PERTUZUMAB
     Indication: Breast cancer
     Dosage: 840 MILLIGRAM (840 MG LOADING DOSE ONCE AND MAINTENANCE DOSE OF 420 MG IN 3 WEEKS)
     Route: 042
     Dates: start: 20150904, end: 20150904
  5. PERTUZUMAB [Suspect]
     Active Substance: PERTUZUMAB
     Dosage: 420 MILLIGRAM (840 MG LOADING DOSE ONCE AND MAINTENANCE DOSE OF 420 MG IN 3 WEEKSDRUG DISCONTINUED F
     Route: 042
     Dates: start: 20150925, end: 20160916
  6. PERTUZUMAB [Suspect]
     Active Substance: PERTUZUMAB
     Dosage: 840 MILLIGRAM (840 MG LOADING DOSE ONCE AND MAINTENANCE DOSE OF 420 MG IN 3 WEEKS)
     Route: 042
     Dates: start: 20161117, end: 20161117
  7. PERTUZUMAB [Suspect]
     Active Substance: PERTUZUMAB
     Dosage: 840 MILLIGRAM (840 MG LOADING DOSE ONCE AND MAINTENANCE DOSE OF 420 MG IN 3 WEEKS)
     Route: 042
     Dates: start: 20161208
  8. PERTUZUMAB [Suspect]
     Active Substance: PERTUZUMAB
     Dosage: 420 MILLIGRAM (840 MG LOADING DOSE ONCE AND MAINTENANCE DOSE OF 420 MG IN 3 WEEKS)
     Route: 042
     Dates: start: 20161208
  9. TRASTUZUMAB [Suspect]
     Active Substance: TRASTUZUMAB
     Indication: Breast cancer
     Dosage: 8 MILLIGRAM/KILOGRAM (LOADING DOSE OF 8 MG/KG AND THEN 6 MG/KG REPEATED AT 3 WEEKLY INTERVALS)
     Route: 042
     Dates: start: 20150904, end: 20150904
  10. TRASTUZUMAB [Suspect]
     Active Substance: TRASTUZUMAB
     Dosage: 6 MILLIGRAM/KILOGRAM (LOADING DOSE OF 8 MG/KG AND THEN 6 MG/KG REPEATED AT 3 WEEKLY INTERVALSDRUG DI
     Route: 042
     Dates: start: 20150925, end: 20160916
  11. TRASTUZUMAB [Suspect]
     Active Substance: TRASTUZUMAB
     Dosage: 8 MILLIGRAM/KILOGRAM (LOADING 8 MG/KG AND THEN MAINTANANCE DOSE 6 MG/KG IN 3 WEEKS)
     Route: 042
     Dates: start: 20161117, end: 20161117
  12. TRASTUZUMAB [Suspect]
     Active Substance: TRASTUZUMAB
     Dosage: 6 MILLIGRAM/KILOGRAM (LOADING 8 MG/KG AND THEN MAINTANANCE DOSE 6 MG/KG IN 3 WEEKS)
     Route: 042
     Dates: start: 20161208
  13. BUDESONIDE [Concomitant]
     Active Substance: BUDESONIDE
     Indication: Product used for unknown indication
     Dosage: UNK
     Route: 065
  14. BUTYLSCOPOLAMINE BROMIDE [Concomitant]
     Active Substance: BUTYLSCOPOLAMINE BROMIDE
     Indication: Product used for unknown indication
     Dosage: UNK
     Route: 065
  15. AMOXICILLIN\CLAVULANATE POTASSIUM [Concomitant]
     Active Substance: AMOXICILLIN\CLAVULANATE POTASSIUM
     Indication: Product used for unknown indication
     Dosage: UNK
     Route: 065
     Dates: start: 20160408
  16. IMODIUM [Concomitant]
     Active Substance: LOPERAMIDE HYDROCHLORIDE
     Indication: Product used for unknown indication
     Dosage: UNK
     Route: 065
  17. INSTILLAGEL [Concomitant]
     Active Substance: CHLORHEXIDINE GLUCONATE\LIDOCAINE HYDROCHLORIDE
     Indication: Product used for unknown indication
     Dosage: UNK
     Route: 065
     Dates: start: 20160426
  18. LANSOPRAZOLE [Concomitant]
     Active Substance: LANSOPRAZOLE
     Indication: Product used for unknown indication
     Dosage: UNK
     Route: 065
  19. CHLORPHENIRAMINE MALEATE [Concomitant]
     Active Substance: CHLORPHENIRAMINE MALEATE
     Indication: Anal pruritus
     Dosage: UNK
     Route: 065
     Dates: start: 20171018
  20. DIBUCAINE HYDROCHLORIDE\PREDNISOLONE [Concomitant]
     Active Substance: DIBUCAINE HYDROCHLORIDE\PREDNISOLONE
     Indication: Product used for unknown indication
     Dosage: UNK
     Route: 065
  21. SENOKOT [Concomitant]
     Active Substance: SENNOSIDES
     Indication: Product used for unknown indication
     Dosage: UNK
     Route: 065
  22. TERBUTALINE [Concomitant]
     Active Substance: TERBUTALINE
     Indication: Product used for unknown indication
     Dosage: UNK
     Route: 065
  23. UNIROID [Concomitant]
     Indication: Product used for unknown indication
     Dosage: UNK
     Route: 065
  24. ZOLEDRONIC ACID [Concomitant]
     Active Substance: ZOLEDRONIC ACID
     Indication: Metastases to bone
     Dosage: UNK
     Route: 065
     Dates: start: 20160129

REACTIONS (2)
  - Pelvic infection [Recovered/Resolved]
  - Diarrhoea [Recovered/Resolved]

NARRATIVE: CASE EVENT DATE: 20151016
